FAERS Safety Report 5507336-1 (Version None)
Quarter: 2007Q4

REPORT INFORMATION
  Report Type: 
  Country: None (occurrence: None)
  Receive Date: 20071106
  Receipt Date: 20071031
  Transmission Date: 20080405
  Serious: Yes (Hospitalization)
  Sender: FDA-Public Use
  Company Number: BR-JNJFOC-20071100730

PATIENT
  Sex: Female

DRUGS (4)
  1. TYLENOL [Suspect]
     Indication: PYREXIA
  2. TYLENOL [Suspect]
     Indication: PAIN
  3. TYLENOL [Suspect]
     Indication: PYREXIA
  4. TYLENOL [Suspect]
     Indication: PAIN

REACTIONS (2)
  - ASPHYXIA [None]
  - THROAT TIGHTNESS [None]
